FAERS Safety Report 8984060 (Version 1)
Quarter: 2012Q4

REPORT INFORMATION
  Report Type: Spontaneous
  Country: US (occurrence: None)
  Receive Date: 20121213
  Receipt Date: 20121213
  Transmission Date: 20130627
  Serious: Yes (Hospitalization)
  Sender: FDA-Public Use
  Company Number: FK201203705

PATIENT
  Age: 50 Year
  Sex: Male

DRUGS (2)
  1. BUPIVACAINE [Suspect]
     Indication: PAIN
     Dosage: Pain ball delivery system, other
  2. IBUPROFEN (IBUPROFEN) [Concomitant]

REACTIONS (2)
  - Drug-induced liver injury [None]
  - Gastritis [None]
